FAERS Safety Report 23503703 (Version 1)
Quarter: 2024Q1

REPORT INFORMATION
  Report Type: Spontaneous
  Country: US (occurrence: None)
  Receive Date: 20240207
  Receipt Date: 20240207
  Transmission Date: 20240409
  Serious: Yes (Disabling)
  Sender: FDA-Public Use
  Company Number: None

PATIENT
  Age: 40 Year
  Sex: Female

DRUGS (6)
  1. BUSPIRONE [Suspect]
     Active Substance: BUSPIRONE HYDROCHLORIDE
  2. SPRAVATO [Suspect]
     Active Substance: ESKETAMINE
  3. GABAPENTIN [Concomitant]
     Active Substance: GABAPENTIN
  4. NUVARING [Concomitant]
     Active Substance: ETHINYL ESTRADIOL\ETONOGESTREL
  5. VITAMIN B12 [Concomitant]
     Active Substance: CYANOCOBALAMIN
  6. IRON [Concomitant]
     Active Substance: IRON

REACTIONS (7)
  - Drug ineffective [None]
  - Tremor [None]
  - Hyperhidrosis [None]
  - Heart rate increased [None]
  - Suicidal ideation [None]
  - Depression [None]
  - Anxiety [None]

NARRATIVE: CASE EVENT DATE: 20240201
